FAERS Safety Report 21641785 (Version 1)
Quarter: 2022Q4

REPORT INFORMATION
  Report Type: Spontaneous
  Country: NL (occurrence: None)
  Receive Date: 20221125
  Receipt Date: 20221125
  Transmission Date: 20230113
  Serious: Yes (Other)
  Sender: FDA-Public Use
  Company Number: 2022A382100

PATIENT
  Sex: Female
  Weight: 80 kg

DRUGS (5)
  1. QUETIAPINE [Suspect]
     Active Substance: QUETIAPINE
     Indication: Product used for unknown indication
     Dosage: 1 X PER DAY 1 PIECE
     Route: 065
     Dates: start: 20210906
  2. DILTIAZEM [Concomitant]
     Active Substance: DILTIAZEM
     Dosage: TABLET, 60 MG (MILLIGRAM)
     Route: 065
  3. CYANOCOBALAMIN [Concomitant]
     Active Substance: CYANOCOBALAMIN
     Dosage: INJECTION SOLUTION, 1 MG/ML (MILLIGRAMS PER MILLILITER)
     Route: 065
  4. NITROGLYCERIN [Concomitant]
     Active Substance: NITROGLYCERIN
     Dosage: SPRAY, 0.4 MG/DOSE (MILLIGRAMS PER DOSE)
     Route: 060
  5. CLOPIDOGREL [Concomitant]
     Active Substance: CLOPIDOGREL BISULFATE
     Dosage: TABLET, 75 MG (MILLIGRAM)
     Route: 065

REACTIONS (3)
  - Apnoea [Not Recovered/Not Resolved]
  - Snoring [Not Recovered/Not Resolved]
  - Weight increased [Unknown]
